FAERS Safety Report 9888654 (Version 1)
Quarter: 2014Q1

REPORT INFORMATION
  Report Type: Report from Study
  Country: DE (occurrence: DE)
  Receive Date: 20140211
  Receipt Date: 20140211
  Transmission Date: 20141002
  Serious: Yes (Hospitalization)
  Sender: FDA-Public Use
  Company Number: DE-UCBSA-111445

PATIENT
  Sex: Female

DRUGS (3)
  1. CERTOLIZUMAB [Suspect]
     Indication: RHEUMATOID ARTHRITIS
     Dosage: 200 MG
     Dates: start: 201304
  2. METHOTREXATE [Suspect]
     Indication: RHEUMATOID ARTHRITIS
     Dosage: DOSE:7.5 MG
  3. ADALIMUMAB [Suspect]
     Indication: RHEUMATOID ARTHRITIS
     Dosage: DOSE:40MG
     Dates: start: 201208, end: 201304

REACTIONS (1)
  - Rheumatoid nodule [Unknown]
